FAERS Safety Report 25494107 (Version 1)
Quarter: 2025Q2

REPORT INFORMATION
  Report Type: Spontaneous
  Country: US (occurrence: None)
  Receive Date: 20250630
  Receipt Date: 20250630
  Transmission Date: 20250717
  Serious: No
  Sender: INCYTE
  Company Number: US-INCYTE CORPORATION-2025IN006704

PATIENT
  Age: 62 Year

DRUGS (2)
  1. JAKAFI [Suspect]
     Active Substance: RUXOLITINIB
     Indication: Chronic graft versus host disease
     Route: 065
  2. REZUROCK [Concomitant]
     Active Substance: BELUMOSUDIL
     Indication: Product used for unknown indication
     Route: 065

REACTIONS (7)
  - Product dose omission issue [Unknown]
  - Respiratory tract congestion [Unknown]
  - Depressed mood [Unknown]
  - Total lung capacity abnormal [Unknown]
  - Arthralgia [Unknown]
  - Joint swelling [Unknown]
  - Off label use [Unknown]
